FAERS Safety Report 14716870 (Version 4)
Quarter: 2018Q2

REPORT INFORMATION
  Report Type: Report from Study
  Country: KR (occurrence: KR)
  Receive Date: 20180404
  Receipt Date: 20180420
  Transmission Date: 20180711
  Serious: Yes (Death, Life-Threatening, Hospitalization)
  Sender: FDA-Public Use
  Company Number: KR-JNJFOC-20180317122

PATIENT
  Age: 76 Year
  Sex: Male
  Weight: 61.5 kg

DRUGS (26)
  1. CARFILZOMIB [Suspect]
     Active Substance: CARFILZOMIB
     Indication: PLASMA CELL MYELOMA
     Dosage: PER CHEMO REGIM
     Route: 042
     Dates: start: 20171206, end: 20180228
  2. TARGIN [Concomitant]
     Active Substance: NALOXONE HYDROCHLORIDE\OXYCODONE HYDROCHLORIDE
     Route: 065
     Dates: start: 20170620, end: 20180330
  3. ACICLOVIR [Concomitant]
     Active Substance: ACYCLOVIR
     Route: 065
     Dates: start: 20170302, end: 20180330
  4. NORMAL SALINE [Concomitant]
     Active Substance: SODIUM CHLORIDE
     Route: 042
  5. NEURONTIN [Concomitant]
     Active Substance: GABAPENTIN
     Route: 065
     Dates: start: 20170322, end: 20180330
  6. ERDOS [Concomitant]
     Active Substance: ERDOSTEINE
     Route: 065
  7. UNASYN [Concomitant]
     Active Substance: AMPICILLIN SODIUM\SULBACTAM SODIUM
     Route: 065
  8. PANORIN [Concomitant]
     Route: 042
     Dates: start: 20180103
  9. CARFILZOMIB [Suspect]
     Active Substance: CARFILZOMIB
     Indication: PLASMA CELL MYELOMA
     Dosage: CYCLE5 DAY2
     Route: 042
     Dates: start: 20180329
  10. SODIUM BICARBONATE. [Concomitant]
     Active Substance: SODIUM BICARBONATE
     Indication: PLASMA CELL MYELOMA
     Dosage: 40-80 MEQ AND 10 G
     Route: 065
     Dates: start: 20171206, end: 20180331
  11. PENIRAMIN [Concomitant]
     Route: 042
  12. TYLENOL ER [Concomitant]
     Active Substance: ACETAMINOPHEN
     Route: 048
  13. ZOLENIC [Concomitant]
     Route: 042
     Dates: start: 20171206
  14. METHYLON [Concomitant]
     Active Substance: METHYLPREDNISOLONE
     Route: 048
  15. LASIX [Concomitant]
     Active Substance: FUROSEMIDE
     Dosage: 10-20 MG
     Route: 065
     Dates: start: 20170117, end: 20180307
  16. SODIUM BICARBONATE. [Concomitant]
     Active Substance: SODIUM BICARBONATE
     Indication: PLASMA CELL MYELOMA
     Route: 065
     Dates: start: 20171206, end: 20171207
  17. DARATUMUMAB [Suspect]
     Active Substance: DARATUMUMAB
     Indication: PLASMA CELL MYELOMA
     Route: 042
     Dates: start: 20180322
  18. FENTORA [Concomitant]
     Active Substance: FENTANYL CITRATE
     Route: 065
  19. VARIDASE [Concomitant]
     Route: 065
     Dates: start: 20180124, end: 20180130
  20. MEGACE F [Concomitant]
     Route: 065
     Dates: start: 20180227, end: 20180327
  21. SINGULAIR [Concomitant]
     Active Substance: MONTELUKAST SODIUM
     Route: 048
  22. DARATUMUMAB [Suspect]
     Active Substance: DARATUMUMAB
     Indication: PLASMA CELL MYELOMA
     Route: 042
     Dates: start: 20171206, end: 20180227
  23. CARFILZOMIB [Suspect]
     Active Substance: CARFILZOMIB
     Indication: PLASMA CELL MYELOMA
     Route: 042
     Dates: start: 20180322
  24. NEXIUM [Concomitant]
     Active Substance: ESOMEPRAZOLE MAGNESIUM
     Route: 048
     Dates: start: 20171206, end: 20180330
  25. DEXAMETHASONE. [Concomitant]
     Active Substance: DEXAMETHASONE
     Indication: PLASMA CELL MYELOMA
     Dosage: 8-20 MG
     Route: 065
     Dates: start: 20171206, end: 20180328
  26. SULTAMICILLIN TOSYLATE [Concomitant]
     Active Substance: SULTAMICILLIN TOSYLATE
     Route: 065

REACTIONS (2)
  - Septic shock [Fatal]
  - Pneumocystis jirovecii pneumonia [Not Recovered/Not Resolved]

NARRATIVE: CASE EVENT DATE: 20180307
